FAERS Safety Report 17191693 (Version 1)
Quarter: 2019Q4

REPORT INFORMATION
  Report Type: Spontaneous
  Country: FR (occurrence: FR)
  Receive Date: 20191223
  Receipt Date: 20191223
  Transmission Date: 20200122
  Serious: Yes (Hospitalization)
  Sender: FDA-Public Use
  Company Number: FR-PFM-2019-15495

PATIENT

DRUGS (9)
  1. BLEOMYCINE BELLON [Suspect]
     Active Substance: BLEOMYCIN SULFATE
     Indication: HODGKIN^S DISEASE
     Dosage: 19.20 MG
     Route: 042
     Dates: start: 20190710, end: 20190923
  2. GEMCITABINE SANDOZ [Suspect]
     Active Substance: GEMCITABINE\GEMCITABINE HYDROCHLORIDE
     Indication: HODGKIN^S DISEASE
     Dosage: 1920 MG PER CURE
     Route: 042
     Dates: start: 20191107, end: 20191114
  3. ADRIBLASTINE [Suspect]
     Active Substance: DOXORUBICIN
     Indication: HODGKIN^S DISEASE
     Dosage: 48 MG PER CURE
     Route: 042
     Dates: start: 20190710, end: 20191024
  4. NAVELBINE [Suspect]
     Active Substance: VINORELBINE TARTRATE
     Indication: OFF LABEL USE
  5. DACARBAZINE MEDAC [Suspect]
     Active Substance: DACARBAZINE
     Indication: HODGKIN^S DISEASE
     Dosage: 720 MG PER CURE
     Route: 042
     Dates: start: 20190710, end: 20191024
  6. ADCETRIS [Suspect]
     Active Substance: BRENTUXIMAB VEDOTIN
     Indication: HODGKIN^S DISEASE
     Dosage: 138.60 MG PER CURE
     Route: 042
     Dates: start: 20191107, end: 20191114
  7. ADRIBLASTINE [Suspect]
     Active Substance: DOXORUBICIN
     Dosage: 28.80 MG PER CURE
     Route: 042
     Dates: start: 20191114
  8. NAVELBINE [Suspect]
     Active Substance: VINORELBINE TARTRATE
     Indication: HODGKIN^S DISEASE
     Dosage: 38.4 MG
     Route: 042
     Dates: start: 20191107, end: 20191114
  9. VELBE [Suspect]
     Active Substance: VINBLASTINE SULFATE
     Indication: HODGKIN^S DISEASE
     Dosage: 11.52 MG
     Route: 042
     Dates: start: 20190710, end: 20191024

REACTIONS (3)
  - Off label use [Unknown]
  - Product used for unknown indication [Unknown]
  - Interstitial lung disease [Recovered/Resolved]

NARRATIVE: CASE EVENT DATE: 20191121
